FAERS Safety Report 12214862 (Version 1)
Quarter: 2016Q1

REPORT INFORMATION
  Report Type: Spontaneous
  Country: US (occurrence: US)
  Receive Date: 20160328
  Receipt Date: 20160328
  Transmission Date: 20160526
  Serious: No
  Sender: FDA-Public Use
  Company Number: US-BRACCO-012772

PATIENT
  Sex: Female

DRUGS (1)
  1. GASTROGRAFIN [Suspect]
     Active Substance: DIATRIZOATE MEGLUMINE\DIATRIZOATE SODIUM
     Indication: BARIUM ENEMA
     Dosage: 3 BOTTLES
     Route: 054
     Dates: start: 20151009, end: 20151009

REACTIONS (4)
  - Abdominal discomfort [Recovered/Resolved]
  - Therapeutic response unexpected [Recovered/Resolved]
  - Anorectal discomfort [Recovered/Resolved]
  - Accidental overdose [Recovered/Resolved]

NARRATIVE: CASE EVENT DATE: 20151009
